FAERS Safety Report 7024372-7 (Version None)
Quarter: 2010Q4

REPORT INFORMATION
  Report Type: 
  Country: None (occurrence: None)
  Receive Date: 20101001
  Receipt Date: 20100922
  Transmission Date: 20110411
  Serious: Yes (Hospitalization)
  Sender: FDA-Public Use
  Company Number: BR-MEDIMMUNE-MEDI-0011463

PATIENT
  Sex: Female
  Weight: 5.8 kg

DRUGS (13)
  1. SYNAGIS [Suspect]
     Indication: CARDIAC DISORDER
     Route: 030
     Dates: start: 20100608, end: 20100608
  2. SYNAGIS [Suspect]
     Indication: BRONCHOPULMONARY DYSPLASIA
  3. GEVITAL [Concomitant]
     Route: 048
     Dates: start: 20091001
  4. FUROSEMIDE [Concomitant]
     Dates: start: 20091001
  5. SILDENAFIL CITRATE [Concomitant]
     Indication: PULMONARY HYPERTENSION
     Dates: start: 20091001
  6. FERROGLYCINATE CHELATE [Concomitant]
     Dates: start: 20091001
  7. MOTIGLAN [Concomitant]
     Dates: start: 20091001
  8. ASCORBIC ACID [Concomitant]
     Dates: start: 20091001
  9. DIMETICONE [Concomitant]
     Indication: FLATULENCE
     Dates: start: 20091001
  10. AMPACO [Concomitant]
     Dates: start: 20091001
  11. BUDESONIDE [Concomitant]
     Indication: RESPIRATORY DISORDER
     Route: 055
     Dates: start: 20091001
  12. FENOTEROL HYDROBROMIDE W/ IPRATROPIUM BROMIDE [Concomitant]
     Indication: RESPIRATORY DISORDER
     Route: 055
     Dates: start: 20091001
  13. CAPTOPRIL [Concomitant]
     Indication: BLOOD PRESSURE
     Route: 048
     Dates: start: 20091001

REACTIONS (2)
  - DYSPNOEA [None]
  - NOSOCOMIAL INFECTION [None]
